FAERS Safety Report 8523239 (Version 8)
Quarter: 2013Q1

REPORT INFORMATION
  Report Type: Spontaneous
  Country: CA (occurrence: CA)
  Receive Date: 20120420
  Receipt Date: 20130121
  Transmission Date: 20140127
  Serious: Yes (Hospitalization, Other)
  Sender: FDA-Public Use
  Company Number: PHHY2012CA023596

PATIENT
  Age: 60 None
  Sex: Female

DRUGS (6)
  1. EXJADE [Suspect]
     Indication: MYELODYSPLASTIC SYNDROME
     Dosage: 800 MG, UNK
     Route: 048
  2. EXJADE [Suspect]
     Indication: IRON OVERLOAD
     Dosage: 850 MG, UNK
     Route: 048
  3. EXJADE [Suspect]
     Dosage: 875 MG, DAILY
     Route: 048
     Dates: start: 20120201, end: 20120508
  4. EXJADE [Suspect]
     Dosage: 875 MG, QD
     Route: 048
     Dates: start: 201209, end: 20121010
  5. EPREX [Concomitant]
     Route: 058
  6. NAPROXEN [Concomitant]

REACTIONS (22)
  - Dyspnoea [Unknown]
  - Pericardial effusion [Unknown]
  - Atelectasis [Unknown]
  - Pleural effusion [Unknown]
  - Pneumonia [Not Recovered/Not Resolved]
  - Pericarditis [Not Recovered/Not Resolved]
  - Pleurisy [Unknown]
  - Chest pain [Unknown]
  - Oropharyngeal pain [Recovering/Resolving]
  - Influenza like illness [Recovering/Resolving]
  - Myalgia [Unknown]
  - Bone pain [Unknown]
  - Chromaturia [Not Recovered/Not Resolved]
  - Respiratory disorder [Not Recovered/Not Resolved]
  - Chest discomfort [Not Recovered/Not Resolved]
  - Ligament pain [Unknown]
  - Arthralgia [Recovering/Resolving]
  - Joint swelling [Recovering/Resolving]
  - Pyrexia [Recovering/Resolving]
  - Diarrhoea [Recovering/Resolving]
  - Fatigue [Unknown]
  - Drug hypersensitivity [Unknown]
